FAERS Safety Report 5005231-8 (Version None)
Quarter: 2006Q2

REPORT INFORMATION
  Report Type: 
  Country: None (occurrence: None)
  Receive Date: 20060518
  Receipt Date: 20060509
  Transmission Date: 20061013
  Serious: Yes (Hospitalization)
  Sender: FDA-Public Use
  Company Number: JP-ABBOTT-06P-087-0332951-00

PATIENT
  Age: 67 Year
  Sex: Female

DRUGS (4)
  1. KLARICID [Suspect]
     Indication: BRONCHITIS
     Route: 048
     Dates: start: 20060403
  2. CEFTRIAXONE SODIUM [Concomitant]
     Indication: BRONCHITIS
     Route: 042
     Dates: start: 20060403
  3. FOSFOMYCIN [Concomitant]
     Indication: DRUG USE FOR UNKNOWN INDICATION
  4. CIPROFLOXACIN [Concomitant]
     Indication: DRUG USE FOR UNKNOWN INDICATION

REACTIONS (4)
  - NAUSEA [None]
  - PYREXIA [None]
  - RASH [None]
  - TRANSAMINASES INCREASED [None]
